FAERS Safety Report 8179721-3 (Version None)
Quarter: 2012Q1

REPORT INFORMATION
  Report Type: 
  Country: None (occurrence: None)
  Receive Date: 20120302
  Receipt Date: 20120221
  Transmission Date: 20120608
  Serious: Yes (Hospitalization)
  Sender: FDA-Public Use
  Company Number: IT-JNJFOC-20120210502

PATIENT
  Sex: Male
  Weight: 98 kg

DRUGS (12)
  1. LIMPIDEX [Concomitant]
     Indication: PROPHYLAXIS
     Route: 048
     Dates: start: 20110214
  2. CALCIUM CARBONATE [Concomitant]
     Indication: HYPOCALCAEMIA
     Route: 048
     Dates: start: 20111213
  3. ENOXAPARIN SODIUM [Concomitant]
     Indication: PROPHYLAXIS
     Route: 058
     Dates: start: 20111209
  4. ABIRATERONE ACETATE [Suspect]
     Route: 048
  5. LASIX [Concomitant]
     Route: 042
     Dates: start: 20111209
  6. TORADOL [Concomitant]
     Indication: PAIN
     Dates: start: 20111220
  7. METHYLPREDNISOLONE [Concomitant]
     Route: 042
     Dates: start: 20111214
  8. NEURONTIN [Concomitant]
     Indication: PAIN
     Route: 048
     Dates: start: 20110214
  9. ACETYLCYSTEINE [Concomitant]
     Route: 048
     Dates: start: 20111207
  10. ABIRATERONE ACETATE [Suspect]
     Indication: PROSTATE CANCER METASTATIC
     Route: 048
     Dates: start: 20111227, end: 20120118
  11. ATENOLOL [Concomitant]
     Indication: HYPERTENSION
     Route: 048
     Dates: start: 20091112
  12. OXYCONTIN [Concomitant]
     Indication: PAIN
     Route: 048
     Dates: start: 20111213

REACTIONS (2)
  - PLEURAL EFFUSION [None]
  - DYSPNOEA [None]
